FAERS Safety Report 4330291-7 (Version None)
Quarter: 2004Q2

REPORT INFORMATION
  Report Type: 
  Country: None (occurrence: None)
  Receive Date: 20040402
  Receipt Date: 20040323
  Transmission Date: 20050107
  Serious: Yes (Other)
  Sender: FDA-Public Use
  Company Number: PHBS2004BR04032

PATIENT
  Age: 35 Year
  Sex: Female
  Weight: 70 kg

DRUGS (1)
  1. CODATEN [Suspect]
     Indication: SCIATICA
     Dosage: 1 DF, ONCE/SINGLE
     Route: 048
     Dates: start: 20040322, end: 20040322

REACTIONS (5)
  - CONVULSION [None]
  - EAR PAIN [None]
  - HYPERSENSITIVITY [None]
  - TREMOR [None]
  - VOMITING [None]
